FAERS Safety Report 4733064-6 (Version None)
Quarter: 2005Q3

REPORT INFORMATION
  Report Type: 
  Country: None (occurrence: None)
  Receive Date: 20050729
  Receipt Date: 20050728
  Transmission Date: 20060218
  Serious: Yes (Death)
  Sender: FDA-Public Use
  Company Number: HQWYE248318JUL05

PATIENT
  Age: 54 Year
  Sex: Male

DRUGS (3)
  1. RAPAMUNE [Suspect]
     Indication: PROPHYLAXIS AGAINST TRANSPLANT REJECTION
     Dosage: 2 MG 1 X PER 1 DAY
     Route: 048
     Dates: start: 20050512, end: 20050525
  2. CYCLOSPORINE [Concomitant]
  3. METHYLPREDNISOLONE (METHYLPREDNISOLONE) [Concomitant]

REACTIONS (3)
  - DEEP VEIN THROMBOSIS [None]
  - LYMPHOCELE [None]
  - PULMONARY EMBOLISM [None]
